FAERS Safety Report 5803469-0 (Version None)
Quarter: 2008Q3

REPORT INFORMATION
  Report Type: 
  Country: None (occurrence: None)
  Receive Date: 20080708
  Receipt Date: 20080627
  Transmission Date: 20090109
  Serious: Yes (Hospitalization, Other)
  Sender: FDA-Public Use
  Company Number: PHHY2008BR13147

PATIENT

DRUGS (7)
  1. FORASEQ [Suspect]
     Indication: BRONCHITIS
     Dosage: 12/400 MCG
     Dates: start: 19980101
  2. FORASEQ [Suspect]
     Indication: CHRONIC OBSTRUCTIVE PULMONARY DISEASE
     Dosage: UNK
     Dates: start: 20020101
  3. FORASEQ [Suspect]
     Indication: EMPHYSEMA
     Dosage: UNK
     Dates: start: 20060301
  4. COMBIVENT [Concomitant]
     Indication: CHRONIC OBSTRUCTIVE PULMONARY DISEASE
     Dosage: UNK
     Route: 048
     Dates: start: 20060101
  5. ATROVENT [Concomitant]
     Indication: CHRONIC OBSTRUCTIVE PULMONARY DISEASE
     Dosage: UNK
     Dates: start: 19980101
  6. BEROTEC [Concomitant]
     Indication: CHRONIC OBSTRUCTIVE PULMONARY DISEASE
     Dosage: UNK
     Dates: start: 19980101
  7. OXYGEN [Concomitant]
     Indication: CHRONIC OBSTRUCTIVE PULMONARY DISEASE
     Dosage: 20 HOURS PER DAY

REACTIONS (21)
  - ABNORMAL FAECES [None]
  - BLISTER [None]
  - BONE DISORDER [None]
  - COLONOSCOPY [None]
  - COUGH [None]
  - DERMATITIS ALLERGIC [None]
  - FREQUENT BOWEL MOVEMENTS [None]
  - GENERAL PHYSICAL HEALTH DETERIORATION [None]
  - HAEMOPTYSIS [None]
  - HEAD INJURY [None]
  - IMMUNODEFICIENCY [None]
  - NOSOCOMIAL INFECTION [None]
  - PNEUMONIA [None]
  - PROCTALGIA [None]
  - PYREXIA [None]
  - RESPIRATORY TRACT INFECTION [None]
  - SPUTUM DISCOLOURED [None]
  - SYNCOPE [None]
  - TOTAL LUNG CAPACITY DECREASED [None]
  - VULVOVAGINAL DISCOMFORT [None]
  - WEIGHT DECREASED [None]
